FAERS Safety Report 15074997 (Version 2)
Quarter: 2023Q4

REPORT INFORMATION
  Report Type: Spontaneous
  Country: US (occurrence: US)
  Receive Date: 20180627
  Receipt Date: 20231128
  Transmission Date: 20240109
  Serious: Yes (Other)
  Sender: FDA-Public Use
  Company Number: US-SAOL THERAPEUTICS-2017SAO01509

PATIENT
  Age: 45 Year
  Sex: Female
  Weight: 61.24 kg

DRUGS (28)
  1. BACLOFEN [Suspect]
     Active Substance: BACLOFEN
     Indication: Muscle spasticity
     Route: 037
  2. BACLOFEN [Suspect]
     Active Substance: BACLOFEN
     Indication: Muscle spasticity
     Dosage: 2249.3 ?G, \DAY
  3. BACLOFEN [Suspect]
     Active Substance: BACLOFEN
     Dosage: 2250 ?G, \DAY
     Route: 037
  4. BACLOFEN [Suspect]
     Active Substance: BACLOFEN
     Dosage: 2200 ?G, \DAY
  5. BUPIVACAINE [Suspect]
     Active Substance: BUPIVACAINE
     Dosage: 8.997 MG, \DAY
     Route: 037
  6. BUPIVACAINE [Suspect]
     Active Substance: BUPIVACAINE
     Dosage: 8.80 MG, \DAY
  7. BUPIVACAINE [Suspect]
     Active Substance: BUPIVACAINE
     Dosage: 13.2 MG, \DAY
  8. CYMBALTA [Concomitant]
     Active Substance: DULOXETINE HYDROCHLORIDE
     Dosage: 60 MG, 1X/DAY
     Route: 048
  9. TOPROL XL [Concomitant]
     Active Substance: METOPROLOL SUCCINATE
     Dosage: 25 MG, 1X/DAY
     Route: 048
  10. ZOFRAN [Concomitant]
     Active Substance: ONDANSETRON HYDROCHLORIDE
  11. IMURAN [Concomitant]
     Active Substance: AZATHIOPRINE
     Dosage: 200 MG, \DAY
  12. IMURAN [Concomitant]
     Active Substance: AZATHIOPRINE
     Dosage: 50 MG, 1X/DAY
     Route: 048
  13. LIALDA [Concomitant]
     Active Substance: MESALAMINE
     Dosage: 4 G, 1X/DAY
  14. NEURONTIN [Concomitant]
     Active Substance: GABAPENTIN
     Dosage: 600 MG, 1X/DAY
     Route: 048
  15. FOLIC ACID [Concomitant]
     Active Substance: FOLIC ACID
     Dosage: 1 UNK, 1X/DAY
     Route: 048
  16. PREDNISONE [Concomitant]
     Active Substance: PREDNISONE
     Dosage: 1 TABLETS, 1X/DAY
     Route: 048
  17. METHOTREXATE [Concomitant]
     Active Substance: METHOTREXATE
     Dosage: 6 TABLETS, 1X/WEEK
     Route: 048
  18. PREVACID 24 HR [Concomitant]
     Active Substance: LANSOPRAZOLE
     Dosage: 15 MG, 1X/DAY
     Route: 048
  19. PROTONIX [Concomitant]
     Active Substance: PANTOPRAZOLE SODIUM
     Dosage: 40 MG, 1X/DAY
     Route: 048
  20. HORIZANT [Concomitant]
     Active Substance: GABAPENTIN ENACARBIL
     Dosage: 600 TABLETS, 1X/DAY
     Route: 048
  21. VICODIN [Concomitant]
     Active Substance: ACETAMINOPHEN\HYDROCODONE BITARTRATE
     Dosage: 1 TABLETS, AS NEEDED
     Route: 048
  22. LIDOCAINE\PRILOCAINE [Concomitant]
     Active Substance: LIDOCAINE\PRILOCAINE
     Route: 061
  23. ARAVA [Concomitant]
     Active Substance: LEFLUNOMIDE
     Dosage: 1 TABLETS, 1X/DAY
     Route: 048
  24. ADVIL [Concomitant]
     Active Substance: IBUPROFEN
     Dosage: 1 TABLETS, AS NEEDED
     Route: 048
  25. LOMOTIL [Concomitant]
     Active Substance: ATROPINE SULFATE\DIPHENOXYLATE HYDROCHLORIDE
     Dosage: 1 TABLETS, UP TO 4X/DAY
     Route: 048
  26. PROBIOTICS NOS [Concomitant]
     Active Substance: PROBIOTICS NOS
  27. VALIUM [Concomitant]
     Active Substance: DIAZEPAM
  28. DIOVAN [Concomitant]
     Active Substance: VALSARTAN

REACTIONS (16)
  - Drug withdrawal syndrome [Recovered/Resolved]
  - Muscle spasms [Unknown]
  - Illness [Unknown]
  - Pyrexia [Unknown]
  - Muscle spasticity [Unknown]
  - Vomiting [Unknown]
  - Headache [Unknown]
  - Blood pressure decreased [Unknown]
  - Device infusion issue [Unknown]
  - Device alarm issue [Unknown]
  - Device failure [Recovered/Resolved]
  - Neuropathy peripheral [Unknown]
  - Therapeutic response decreased [Unknown]
  - Paraesthesia [Unknown]
  - Abnormal loss of weight [Unknown]
  - Pain [Unknown]

NARRATIVE: CASE EVENT DATE: 20160801
